FAERS Safety Report 5446883-8 (Version None)
Quarter: 2007Q3

REPORT INFORMATION
  Report Type: 
  Country: None (occurrence: None)
  Receive Date: 20070907
  Receipt Date: 20070828
  Transmission Date: 20080115
  Serious: Yes (Other)
  Sender: FDA-Public Use
  Company Number: US-PFIZER INC-2007073228

PATIENT
  Sex: Female

DRUGS (2)
  1. CHANTIX [Suspect]
  2. IBANDRONATE SODIUM [Concomitant]

REACTIONS (1)
  - VASCULAR RUPTURE [None]
